FAERS Safety Report 6897715-2 (Version None)
Quarter: 2010Q3

REPORT INFORMATION
  Report Type: 
  Country: None (occurrence: None)
  Receive Date: 20100802
  Receipt Date: 20070710
  Transmission Date: 20110219
  Serious: Yes (Other)
  Sender: FDA-Public Use
  Company Number: US-PFIZER INC-2007057522

PATIENT
  Sex: Female
  Weight: 90 kg

DRUGS (7)
  1. LYRICA [Suspect]
     Indication: MUSCULOSKELETAL STIFFNESS
     Dates: start: 20051101
  2. CYMBALTA [Concomitant]
  3. ALL OTHER THERAPEUTIC PRODUCTS [Concomitant]
  4. TESSALON [Concomitant]
  5. NAPROXEN [Concomitant]
  6. VICODIN [Concomitant]
  7. SOMA [Concomitant]

REACTIONS (2)
  - BLOOD CHOLESTEROL INCREASED [None]
  - WEIGHT INCREASED [None]
